FAERS Safety Report 22073706 (Version 6)
Quarter: 2023Q2

REPORT INFORMATION
  Report Type: Spontaneous
  Country: BE (occurrence: BE)
  Receive Date: 20230308
  Receipt Date: 20230510
  Transmission Date: 20230722
  Serious: Yes (Other)
  Sender: FDA-Public Use
  Company Number: BE-PFIZER INC-PV202300043071

PATIENT
  Age: 90 Year
  Sex: Male
  Weight: 68 kg

DRUGS (17)
  1. VYNDAQEL [Suspect]
     Active Substance: TAFAMIDIS MEGLUMINE
     Indication: Cardiac amyloidosis
     Dosage: 61 MG
     Route: 048
     Dates: start: 20191105, end: 20230303
  2. CORDARONE [Suspect]
     Active Substance: AMIODARONE HYDROCHLORIDE
     Indication: Atrial fibrillation
     Dosage: 200 MG, 4 DAYS/WEEK
     Dates: start: 20191205, end: 20230303
  3. ELIQUIS [Concomitant]
     Active Substance: APIXABAN
     Indication: Atrial fibrillation
     Dosage: 5 MG, 2X/DAY 1-0-1-0
     Dates: start: 20191118
  4. LIPITOR [Concomitant]
     Active Substance: ATORVASTATIN CALCIUM
     Indication: Hypercholesterolaemia
     Dosage: UNK
  5. MOLSIDOMINE [Concomitant]
     Active Substance: MOLSIDOMINE
     Indication: Angina pectoris
     Dosage: 16 MG, 1X/DAY 0-01-0
  6. EZETIMIBE\SIMVASTATIN [Concomitant]
     Active Substance: EZETIMIBE\SIMVASTATIN
     Indication: Cardiac failure
     Dosage: 10/40 1/D 0-0-1-0
  7. BUMETANIDE [Concomitant]
     Active Substance: BUMETANIDE
     Indication: Cardiac failure
     Dosage: 1 MG 1X 0.5/D: VERY OCCASIONALLY IN THE PAST
  8. BUMETANIDE [Concomitant]
     Active Substance: BUMETANIDE
     Dosage: HALF A COMPRESS EVERY 2 DAYS
  9. BUMETANIDE [Concomitant]
     Active Substance: BUMETANIDE
     Dosage: INCREASED TO 2 X 1/D
     Dates: start: 20230220
  10. ACETYLCYSTEINE [Concomitant]
     Active Substance: ACETYLCYSTEINE
     Indication: Lung disorder
     Dosage: 600 MG, 1-2 X/DAY
     Dates: start: 20230220
  11. GLUCOSAMINE [Concomitant]
     Active Substance: GLUCOSAMINE
     Dosage: CHONDRONORM 3 X 500MG 1X/DAY (0-3-0-0 )
  12. SPIRONOLACTONE [Concomitant]
     Active Substance: SPIRONOLACTONE
     Indication: Cardiac failure
     Dosage: 25 MG, 1X/DAY
  13. MOREPA [Concomitant]
     Dosage: UNK
  14. LATANOPROST [Concomitant]
     Active Substance: LATANOPROST
     Dosage: EYEDROPS
     Route: 047
  15. FOLIC ACID [Concomitant]
     Active Substance: FOLIC ACID
     Dosage: 0.4, 1X/DAY
  16. MAGNEPAMYL FORTE [Concomitant]
     Dosage: UNK, 2X/DAY SINCE SEVERAL WEEKS
  17. METHYLPREDNISOLONE ACETATE [Concomitant]
     Active Substance: METHYLPREDNISOLONE ACETATE
     Dosage: 32 MG 1DD, ALREADY REDUCED TO 24 MG IN REDUCTION SCHEDULE AFTER 1 WEEK

REACTIONS (9)
  - Pulmonary fibrosis [Recovering/Resolving]
  - Pulmonary toxicity [Recovering/Resolving]
  - COVID-19 [Unknown]
  - Respiratory failure [Unknown]
  - Hypoxia [Unknown]
  - Dyspnoea [Unknown]
  - Back pain [Unknown]
  - Visual impairment [Recovering/Resolving]
  - Spinal stenosis [Unknown]

NARRATIVE: CASE EVENT DATE: 20210701
